FAERS Safety Report 7438120-X (Version None)
Quarter: 2011Q2

REPORT INFORMATION
  Report Type: 
  Country: None (occurrence: None)
  Receive Date: 20110426
  Receipt Date: 20110420
  Transmission Date: 20111010
  Serious: Yes (Hospitalization)
  Sender: FDA-Public Use
  Company Number: US-BRISTOL-MYERS SQUIBB COMPANY-15193618

PATIENT
  Age: 26 Year
  Sex: Female

DRUGS (12)
  1. REYATAZ [Suspect]
     Indication: HIV INFECTION
     Dates: start: 20091014, end: 20100108
  2. NORVIR [Suspect]
     Indication: HIV INFECTION
     Dates: start: 20091014, end: 20100108
  3. TRUVADA [Suspect]
     Indication: HIV INFECTION
     Dates: start: 20100108
  4. EMTRICITABINE [Suspect]
     Indication: HIV INFECTION
  5. ADCO-DOL [Concomitant]
     Indication: ANALGESIC THERAPY
     Dates: start: 20100317, end: 20100501
  6. CALCIUM + VITAMIN D [Concomitant]
     Dates: start: 20100501
  7. MULTI-VITAMIN [Concomitant]
     Dates: start: 20100108
  8. PANADO [Concomitant]
     Indication: HEADACHE
     Dates: start: 20091112
  9. BUSCOPAN [Concomitant]
     Indication: DIARRHOEA
  10. COMBIVIR [Suspect]
     Indication: HIV INFECTION
     Dates: start: 20091014, end: 20100108
  11. VIREAD [Suspect]
     Indication: HIV INFECTION
  12. ASCORBIC ACID [Concomitant]
     Dates: start: 20100501

REACTIONS (2)
  - VOMITING [None]
  - ANXIETY [None]
